FAERS Safety Report 7983272-6 (Version None)
Quarter: 2011Q4

REPORT INFORMATION
  Report Type: 
  Country: None (occurrence: None)
  Receive Date: 20111215
  Receipt Date: 20111130
  Transmission Date: 20120403
  Serious: Yes (Other)
  Sender: FDA-Public Use
  Company Number: US-ENDO PHARMACEUTICALS INC.-RANI20110002

PATIENT
  Sex: Female
  Weight: 7.718 kg

DRUGS (2)
  1. RANITIDINE [Suspect]
     Indication: GASTROOESOPHAGEAL REFLUX DISEASE
     Dosage: 6 MG
     Route: 048
     Dates: start: 20111129, end: 20111129
  2. PERIACTIN [Concomitant]
     Indication: MIGRAINE
     Dosage: UNK
     Route: 065
     Dates: start: 20110801, end: 20111101

REACTIONS (5)
  - VOMITING [None]
  - FEELING ABNORMAL [None]
  - CONVULSION [None]
  - CHOKING [None]
  - SOMNOLENCE [None]
